FAERS Safety Report 18815710 (Version 1)
Quarter: 2021Q1

REPORT INFORMATION
  Report Type: Spontaneous
  Country: US (occurrence: US)
  Receive Date: 20210130
  Receipt Date: 20210130
  Transmission Date: 20210419
  Serious: Yes (Hospitalization)
  Sender: FDA-Public Use
  Company Number: None

PATIENT
  Age: 37 Year
  Sex: Male
  Weight: 124 kg

DRUGS (32)
  1. MONTELUKAST [Concomitant]
     Active Substance: MONTELUKAST SODIUM
  2. VENLAFAXINE XR [Concomitant]
     Active Substance: VENLAFAXINE HYDROCHLORIDE
  3. ZALEPLON. [Concomitant]
     Active Substance: ZALEPLON
  4. ZOFRAN [Concomitant]
     Active Substance: ONDANSETRON HYDROCHLORIDE
  5. FARXIGA [Concomitant]
     Active Substance: DAPAGLIFLOZIN PROPANEDIOL
  6. OXYBUTYNIN. [Concomitant]
     Active Substance: OXYBUTYNIN CHLORIDE
  7. TERAZOSIN [Concomitant]
     Active Substance: TERAZOSIN HYDROCHLORIDE
  8. DEXMETETOMIDINE INFUSION [Concomitant]
  9. ENOXAPARIN [Concomitant]
     Active Substance: ENOXAPARIN
  10. MULTIVITAMIN [Concomitant]
     Active Substance: VITAMINS
  11. TEMAZEPAM. [Concomitant]
     Active Substance: TEMAZEPAM
  12. BENZONATATE. [Concomitant]
     Active Substance: BENZONATATE
  13. REMDESIVIR. [Concomitant]
     Active Substance: REMDESIVIR
  14. ARMODAFINIL. [Concomitant]
     Active Substance: ARMODAFINIL
  15. AZITHROMYCIN ANHYDROUS. [Concomitant]
     Active Substance: AZITHROMYCIN ANHYDROUS
  16. GABAPENTIN. [Concomitant]
     Active Substance: GABAPENTIN
  17. TRAMADOL. [Concomitant]
     Active Substance: TRAMADOL
  18. IVERMACTIN [Concomitant]
  19. MELATONIN [Concomitant]
     Active Substance: MELATONIN
  20. BAMLANIVIMAB. [Suspect]
     Active Substance: BAMLANIVIMAB
     Indication: COVID-19
     Route: 042
     Dates: start: 20210126, end: 20210126
  21. DECADRON [Concomitant]
     Active Substance: DEXAMETHASONE
  22. TRIAMCINOLONE [Concomitant]
     Active Substance: TRIAMCINOLONE
  23. COVID CONVALESCENT PLASMA [Concomitant]
     Active Substance: COVID-19 CONVALESCENT PLASMA
  24. METFORMIN [Concomitant]
     Active Substance: METFORMIN HYDROCHLORIDE
  25. PROMETHAXINE?DM [Concomitant]
  26. BENADRYL [Concomitant]
     Active Substance: DIPHENHYDRAMINE HYDROCHLORIDE
  27. FAMOTIDINE. [Concomitant]
     Active Substance: FAMOTIDINE
  28. ALBUTEROL. [Concomitant]
     Active Substance: ALBUTEROL
  29. ATORVASTATIN [Concomitant]
     Active Substance: ATORVASTATIN
  30. CHLORZOXAZONE. [Concomitant]
     Active Substance: CHLORZOXAZONE
  31. ACETAMINOPHEN. [Concomitant]
     Active Substance: ACETAMINOPHEN
  32. FLONASE [Concomitant]
     Active Substance: FLUTICASONE PROPIONATE

REACTIONS (1)
  - COVID-19 [None]

NARRATIVE: CASE EVENT DATE: 20210126
